FAERS Safety Report 5894965-9 (Version None)
Quarter: 2008Q3

REPORT INFORMATION
  Report Type: 
  Country: None (occurrence: None)
  Receive Date: 20080924
  Receipt Date: 20080919
  Transmission Date: 20090109
  Serious: Yes (Death, Other)
  Sender: FDA-Public Use
  Company Number: PHEH2008US05455

PATIENT
  Sex: Female

DRUGS (1)
  1. FEMARA [Suspect]
     Dosage: 2.5 MG, QD
     Route: 048
     Dates: start: 20070303, end: 20080404

REACTIONS (2)
  - DEATH [None]
  - NEOPLASM MALIGNANT [None]
